FAERS Safety Report 4461982-5 (Version None)
Quarter: 2004Q3

REPORT INFORMATION
  Report Type: 
  Country: None (occurrence: None)
  Receive Date: 20040929
  Receipt Date: 20040921
  Transmission Date: 20050211
  Serious: Yes (Death, Disabling)
  Sender: FDA-Public Use
  Company Number: JP-JNJFOC-20040906317

PATIENT
  Age: 75 Year
  Sex: Male

DRUGS (13)
  1. TAVANIC [Suspect]
     Route: 049
  2. ATRODUAL [Concomitant]
     Route: 049
  3. ATRODUAL [Concomitant]
     Route: 049
  4. ACETAMINOPHEN [Concomitant]
     Route: 049
  5. FURESIS [Concomitant]
     Route: 049
  6. TRILEPTAL [Concomitant]
     Route: 049
  7. PREDNISOLONE [Concomitant]
     Route: 049
  8. MOVICOL SACHET [Concomitant]
     Route: 049
  9. MOVICOL SACHET [Concomitant]
     Route: 049
  10. MOVICOL SACHET [Concomitant]
     Route: 049
  11. MOVICOL SACHET [Concomitant]
     Indication: LAXATIVE SUPPORTIVE CARE
     Route: 049
  12. LAXOBERON [Concomitant]
     Route: 049
  13. PRIMPERAN INJ [Concomitant]
     Route: 049

REACTIONS (3)
  - LUNG NEOPLASM MALIGNANT [None]
  - MALIGNANT NEOPLASM PROGRESSION [None]
  - TENDON RUPTURE [None]
